FAERS Safety Report 18784572 (Version 1)
Quarter: 2021Q1

REPORT INFORMATION
  Report Type: Other
  Country: US (occurrence: US)
  Receive Date: 20210125
  Receipt Date: 20210125
  Transmission Date: 20210419
  Serious: No
  Sender: FDA-Public Use
  Company Number: US-ROCHE-2508850

PATIENT
  Age: 50 Year
  Sex: Male

DRUGS (4)
  1. DOXYCYCLINE. [Concomitant]
     Active Substance: DOXYCYCLINE
  2. PREDNISONE. [Concomitant]
     Active Substance: PREDNISONE
  3. NIACINAMIDE [Concomitant]
     Active Substance: NIACINAMIDE
  4. RITUXIMAB. [Suspect]
     Active Substance: RITUXIMAB
     Indication: PEMPHIGUS
     Route: 065

REACTIONS (1)
  - Psoriasis [Recovering/Resolving]
